FAERS Safety Report 5993792-1 (Version None)
Quarter: 2008Q4

REPORT INFORMATION
  Report Type: 
  Country: None (occurrence: None)
  Receive Date: 20081212
  Receipt Date: 20081205
  Transmission Date: 20090506
  Serious: Yes (Death, Hospitalization)
  Sender: FDA-Public Use
  Company Number: US-ELI_LILLY_AND_COMPANY-US200812002731

PATIENT

DRUGS (1)
  1. ILETIN [Suspect]
     Dates: start: 19800101, end: 20010101

REACTIONS (4)
  - DRUG EXPOSURE DURING PREGNANCY [None]
  - DRUG EXPOSURE VIA BREAST MILK [None]
  - NEOPLASM MALIGNANT [None]
  - PREMATURE BABY [None]
